FAERS Safety Report 9888262 (Version 1)
Quarter: 2014Q1

REPORT INFORMATION
  Report Type: Spontaneous
  Country: CA (occurrence: None)
  Receive Date: 20140207
  Receipt Date: 20140207
  Transmission Date: 20141002
  Serious: Yes (Disabling, Other)
  Sender: FDA-Public Use
  Company Number: SYM-2014-15941

PATIENT
  Age: 39 Year
  Sex: Male

DRUGS (4)
  1. WELLBUTRIN XL [Suspect]
     Indication: PRODUCT USED FOR UNKNOWN INDICATION
  2. NOVO-PORFEN (IBUPROFEN) (TABLET) (IBUPROFEN) [Concomitant]
  3. PMS-QUETIAPINE (QUETIAPINE FUMARATE) (TABLET) (QUETIAPINE FUMARATE) [Concomitant]
  4. RATIO-EMTEC-30 (PANADEINE CO) (TABLET) (CODEINE PHOSPHATE, PARACETAMOL) [Concomitant]

REACTIONS (3)
  - Joint stiffness [None]
  - Nightmare [None]
  - Pain in jaw [None]
